FAERS Safety Report 24394056 (Version 1)
Quarter: 2024Q4

REPORT INFORMATION
  Report Type: Spontaneous
  Country: US (occurrence: US)
  Receive Date: 20241003
  Receipt Date: 20241003
  Transmission Date: 20250115
  Serious: No
  Sender: AMGEN
  Company Number: US-AMGEN-USASP2024193652

PATIENT
  Age: 73 Year
  Sex: Male

DRUGS (3)
  1. RITUXIMAB [Suspect]
     Active Substance: RITUXIMAB
     Indication: Necrotising myositis
     Dosage: UNK
     Route: 065
  2. HUMAN IMMUNOGLOBULIN G [Concomitant]
     Active Substance: HUMAN IMMUNOGLOBULIN G
     Dosage: UNK
     Route: 042
  3. AZATHIOPRINE [Concomitant]
     Active Substance: AZATHIOPRINE
     Dosage: UNK
     Route: 065

REACTIONS (2)
  - Drug effective for unapproved indication [Unknown]
  - Off label use [Unknown]
